FAERS Safety Report 5708164-4 (Version None)
Quarter: 2008Q2

REPORT INFORMATION
  Report Type: 
  Country: None (occurrence: None)
  Receive Date: 20080417
  Receipt Date: 20080415
  Transmission Date: 20081010
  Serious: Yes (Hospitalization)
  Sender: FDA-Public Use
  Company Number: B0514263A

PATIENT
  Age: 64 Year
  Sex: Male

DRUGS (4)
  1. ARIXTRA [Suspect]
     Indication: THROMBOSIS PROPHYLAXIS
     Dosage: 2.5MG PER DAY
     Route: 058
     Dates: start: 20080228, end: 20080312
  2. CEFMETAZON [Concomitant]
     Indication: INFECTION PROPHYLAXIS
     Dosage: 2G PER DAY
     Route: 065
     Dates: start: 20080226, end: 20080302
  3. SAWACILLIN [Concomitant]
     Indication: INFECTION PROPHYLAXIS
     Route: 048
     Dates: start: 20080303, end: 20080309
  4. FERROMIA [Concomitant]
     Dosage: 150MG PER DAY
     Route: 048
     Dates: start: 20080227

REACTIONS (2)
  - INTRA-ABDOMINAL HAEMATOMA [None]
  - MICTURITION URGENCY [None]
